FAERS Safety Report 6997483-X (Version None)
Quarter: 2010Q3

REPORT INFORMATION
  Report Type: 
  Country: None (occurrence: None)
  Receive Date: 20100918
  Receipt Date: 20091015
  Transmission Date: 20110219
  Serious: No
  Sender: FDA-Public Use
  Company Number: US-WYE-H11708809

PATIENT
  Age: 65 Year
  Sex: Male

DRUGS (2)
  1. EFFEXOR XR [Suspect]
     Indication: DEPRESSION
     Route: 048
     Dates: start: 20060101, end: 20090101
  2. EFFEXOR XR [Suspect]
     Dosage: ^SKIPPE DONE DAY THE FIRST WEEK THEN TWO DAYS THE SECOND WEEK^
     Route: 048
     Dates: start: 20090101

REACTIONS (3)
  - ARTHRALGIA [None]
  - DRUG WITHDRAWAL SYNDROME [None]
  - HEADACHE [None]
